FAERS Safety Report 26065950 (Version 1)
Quarter: 2025Q4

REPORT INFORMATION
  Report Type: Report from Study
  Country: US (occurrence: US)
  Receive Date: 20251119
  Receipt Date: 20251119
  Transmission Date: 20260118
  Serious: No
  Sender: MALLINCKRODT
  Company Number: US-MALLINCKRODT-MNK202506878

PATIENT
  Sex: Female

DRUGS (2)
  1. CORTICOTROPIN [Suspect]
     Active Substance: CORTICOTROPIN
     Indication: Dry eye
     Dosage: UNKNOWN
  2. ROGAINE [Concomitant]
     Active Substance: MINOXIDIL
     Dosage: UNKNOWN
     Route: 061

REACTIONS (2)
  - Alopecia [Unknown]
  - Hair texture abnormal [Unknown]
